FAERS Safety Report 13102385 (Version 1)
Quarter: 2017Q1

REPORT INFORMATION
  Report Type: Spontaneous
  Country: US (occurrence: US)
  Receive Date: 20170110
  Receipt Date: 20170110
  Transmission Date: 20170428
  Serious: No
  Sender: FDA-Public Use
  Company Number: US-ALLERGAN-1656619US

PATIENT
  Age: 84 Year
  Sex: Female

DRUGS (2)
  1. PREDNISOLONE ACETATE, 1.0% [Suspect]
     Active Substance: PREDNISOLONE ACETATE
     Indication: EYE INFECTION
     Dosage: 1 DROP, BID FOR 14 DAYS
     Route: 047
     Dates: start: 20160506
  2. BESIVANCE [Concomitant]
     Active Substance: BESIFLOXACIN
     Indication: INFECTION
     Dosage: UNK TWICE DAILY, BID
     Route: 047
     Dates: start: 20160506

REACTIONS (3)
  - Liquid product physical issue [Unknown]
  - Product physical consistency issue [Unknown]
  - Dry eye [Not Recovered/Not Resolved]

NARRATIVE: CASE EVENT DATE: 20160506
